FAERS Safety Report 9643930 (Version 1)
Quarter: 2013Q4

REPORT INFORMATION
  Report Type: Spontaneous
  Country: FR (occurrence: FR)
  Receive Date: 20131024
  Receipt Date: 20131024
  Transmission Date: 20140711
  Serious: Yes (Other)
  Sender: FDA-Public Use
  Company Number: PHHY2013FR118187

PATIENT
  Age: 20 Year
  Sex: Male

DRUGS (1)
  1. METHADONE [Suspect]

REACTIONS (5)
  - Loss of consciousness [Recovering/Resolving]
  - Toxicity to various agents [Unknown]
  - Respiratory distress [Recovering/Resolving]
  - Rhonchi [Unknown]
  - Crepitations [Unknown]
